FAERS Safety Report 8976178 (Version 6)
Quarter: 2014Q4

REPORT INFORMATION
  Report Type: Spontaneous
  Country: US (occurrence: US)
  Receive Date: 20121220
  Receipt Date: 20141126
  Transmission Date: 20150529
  Serious: Yes (Disabling)
  Sender: FDA-Public Use
  Company Number: US-009507513-1212USA007569

PATIENT
  Sex: Male

DRUGS (4)
  1. PROSCAR [Suspect]
     Active Substance: FINASTERIDE
     Dosage: 2.5 MG, QD
     Route: 048
     Dates: start: 2001, end: 2011
  2. FINASTERIDE. [Suspect]
     Active Substance: FINASTERIDE
     Indication: ANDROGENETIC ALOPECIA
     Dosage: 1/4 OF 5 MG  PILL DAILY
     Dates: start: 200604, end: 201112
  3. PROSCAR [Suspect]
     Active Substance: FINASTERIDE
     Indication: ANDROGENETIC ALOPECIA
     Dosage: 1/4 OF 5 MG PILL, UNK
     Route: 048
     Dates: start: 200012, end: 200604
  4. PROPECIA [Suspect]
     Active Substance: FINASTERIDE
     Indication: ANDROGENETIC ALOPECIA
     Dosage: 1 MG, UNK
     Route: 048
     Dates: start: 200011, end: 200012

REACTIONS (20)
  - Hypothalamo-pituitary disorder [Unknown]
  - Stress [Unknown]
  - Vision blurred [Unknown]
  - Sexual dysfunction [Unknown]
  - Wrong technique in drug usage process [Unknown]
  - Arthralgia [Recovered/Resolved]
  - Restlessness [Unknown]
  - Fatigue [Recovering/Resolving]
  - Snoring [Unknown]
  - Drug administration error [Unknown]
  - Anxiety [Recovered/Resolved]
  - Social avoidant behaviour [Recovered/Resolved]
  - Insomnia [Recovered/Resolved with Sequelae]
  - Loss of libido [Recovering/Resolving]
  - Erectile dysfunction [Unknown]
  - Orgasm abnormal [Unknown]
  - Depression [Recovered/Resolved]
  - Hypogonadism [Unknown]
  - Mood altered [Recovered/Resolved]
  - Anger [Unknown]

NARRATIVE: CASE EVENT DATE: 200011
